FAERS Safety Report 7988374-6 (Version None)
Quarter: 2011Q4

REPORT INFORMATION
  Report Type: 
  Country: None (occurrence: None)
  Receive Date: 20111216
  Receipt Date: 20111207
  Transmission Date: 20120403
  Serious: Yes (Other)
  Sender: FDA-Public Use
  Company Number: US-ASTRAZENECA-2011SE70564

PATIENT
  Age: 58 Year
  Sex: Male
  Weight: 104.3 kg

DRUGS (3)
  1. CRESTOR [Suspect]
     Indication: HYPERLIPIDAEMIA
     Route: 048
     Dates: start: 20110122, end: 20111026
  2. UNIRETIC [Concomitant]
     Indication: HYPERTENSION
     Dosage: 15/25 GRAM DAILY
     Route: 048
     Dates: start: 20080730
  3. AMLODIPINE [Concomitant]
     Indication: HYPERTENSION
     Dosage: 10 MG DAILY
     Route: 048
     Dates: start: 20090318

REACTIONS (2)
  - ADVERSE EVENT [None]
  - MYALGIA [None]
